FAERS Safety Report 16656358 (Version 3)
Quarter: 2020Q2

REPORT INFORMATION
  Report Type: Spontaneous
  Country: US (occurrence: US)
  Receive Date: 20190801
  Receipt Date: 20200413
  Transmission Date: 20200713
  Serious: Yes (Other)
  Sender: FDA-Public Use
  Company Number: US-GILEAD-2019-0420412

PATIENT
  Age: 27 Year
  Sex: Male
  Weight: 75.28 kg

DRUGS (1)
  1. TRUVADA [Suspect]
     Active Substance: EMTRICITABINE\TENOFOVIR DISOPROXIL FUMARATE
     Indication: PROPHYLAXIS AGAINST HIV INFECTION
     Dosage: UNK
     Route: 048
     Dates: start: 201810, end: 201905

REACTIONS (9)
  - Tooth fracture [Recovered/Resolved]
  - Emotional distress [Unknown]
  - Tooth loss [Unknown]
  - Anxiety [Unknown]
  - Anhedonia [Unknown]
  - Bone loss [Recovered/Resolved]
  - Pain [Unknown]
  - Bone density abnormal [Unknown]
  - Economic problem [Unknown]

NARRATIVE: CASE EVENT DATE: 201902
